FAERS Safety Report 8885774 (Version 2)
Quarter: 2012Q4

REPORT INFORMATION
  Report Type: 
  Country: AU (occurrence: AU)
  Receive Date: 20121105
  Receipt Date: 20121122
  Transmission Date: 20130627
  Serious: Yes (Hospitalization, Other)
  Sender: FDA-Public Use
  Company Number: PHHY2012AU099938

PATIENT
  Age: 69 None
  Sex: Female
  Weight: 80 kg

DRUGS (3)
  1. FEMARA [Suspect]
     Indication: BREAST CANCER METASTATIC
     Dosage: 2.5 mg, daily
     Route: 048
     Dates: start: 201201, end: 201208
  2. XELODA [Concomitant]
  3. CAPECITABINE [Concomitant]

REACTIONS (3)
  - Myocardial infarction [Recovering/Resolving]
  - Chest discomfort [Unknown]
  - Metastases to liver [Not Recovered/Not Resolved]
